FAERS Safety Report 6553623-8 (Version None)
Quarter: 2010Q1

REPORT INFORMATION
  Report Type: 
  Country: None (occurrence: None)
  Receive Date: 20100127
  Receipt Date: 20100119
  Transmission Date: 20100710
  Serious: Yes (Hospitalization)
  Sender: FDA-Public Use
  Company Number: AU-SP-2009-05507

PATIENT
  Age: 64 Year
  Sex: Male

DRUGS (2)
  1. IMMUCYST [Suspect]
     Indication: TRANSITIONAL CELL CARCINOMA
     Route: 043
     Dates: start: 20090924, end: 20091002
  2. AMOXICILLIN [Concomitant]
     Indication: URINARY TRACT INFECTION

REACTIONS (7)
  - ABDOMINAL PAIN LOWER [None]
  - BOVINE TUBERCULOSIS [None]
  - CHILLS [None]
  - LETHARGY [None]
  - MALAISE [None]
  - NIGHT SWEATS [None]
  - URINARY TRACT INFECTION [None]
